FAERS Safety Report 9001662 (Version 1)
Quarter: 2013Q1

REPORT INFORMATION
  Report Type: Spontaneous
  Country: JP (occurrence: JP)
  Receive Date: 20130107
  Receipt Date: 20130107
  Transmission Date: 20140127
  Serious: Yes (Death)
  Sender: FDA-Public Use
  Company Number: JP-ABBOTT-09P-087-0606136-00

PATIENT
  Age: 58 Year
  Sex: Male

DRUGS (6)
  1. CLARITHROMYCIN [Suspect]
     Indication: MYCOBACTERIUM AVIUM COMPLEX INFECTION
     Dosage: NOT REPORTED
     Route: 048
     Dates: start: 200707, end: 200802
  2. CLARITHROMYCIN [Suspect]
     Dates: start: 200802, end: 200905
  3. RIFAMPICIN [Suspect]
     Indication: MYCOBACTERIUM AVIUM COMPLEX INFECTION
     Dosage: NOT REPORTED
     Dates: end: 200802
  4. ETHAMBUTOL HYDROCHLORIDE [Suspect]
     Indication: MYCOBACTERIUM AVIUM COMPLEX INFECTION
     Dosage: NOT REPORTED
     Dates: end: 200802
  5. STREPTOMYCIN [Concomitant]
     Indication: MYCOBACTERIUM AVIUM COMPLEX INFECTION
     Dosage: NOT REPORTED
  6. LEVOFLOXACIN [Concomitant]
     Indication: MYCOBACTERIUM AVIUM COMPLEX INFECTION
     Dosage: NOT REPORTED

REACTIONS (2)
  - Pulmonary cavitation [Fatal]
  - Decreased appetite [Recovered/Resolved]
